FAERS Safety Report 10382426 (Version 5)
Quarter: 2015Q1

REPORT INFORMATION
  Report Type: Spontaneous
  Country: GB (occurrence: GB)
  Receive Date: 20140813
  Receipt Date: 20150309
  Transmission Date: 20150720
  Serious: Yes (Other)
  Sender: FDA-Public Use
  Company Number: GB-TEVA-500559ISR

PATIENT

DRUGS (4)
  1. CLONIDINE. [Suspect]
     Active Substance: CLONIDINE
     Indication: PRODUCT USED FOR UNKNOWN INDICATION
     Dosage: .189 MICROGRAM DAILY; 0.03 MG/ML, (30 MC/L)
     Route: 037
  2. MORPHINE [Suspect]
     Active Substance: MORPHINE
     Indication: PRODUCT USED FOR UNKNOWN INDICATION
     Dosage: 6.3 MICROGRAM DAILY; 6.3 MCG, QD
     Route: 037
  3. BACLOFEN. [Suspect]
     Active Substance: BACLOFEN
     Indication: SPINAL CORD INJURY THORACIC
     Dosage: 1.53 MICROGRAM DAILY; UNK UKN, (EQUIVALENT OF 315MCG/ML). 1.53 MICROGRAM, QD
     Route: 037
  4. BUPIVACAINE [Suspect]
     Active Substance: BUPIVACAINE
     Indication: PRODUCT USED FOR UNKNOWN INDICATION
     Dosage: .126 MILLIGRAM DAILY; 0.126 MG, QD
     Route: 037

REACTIONS (3)
  - No therapeutic response [Unknown]
  - Breakthrough pain [Unknown]
  - Infusion site nodule [Unknown]
